FAERS Safety Report 4402658-X (Version None)
Quarter: 2004Q3

REPORT INFORMATION
  Report Type: 
  Country: None (occurrence: None)
  Receive Date: 20040721
  Receipt Date: 20040708
  Transmission Date: 20050211
  Serious: Yes (Hospitalization)
  Sender: FDA-Public Use
  Company Number: BR-BRISTOL-MYERS SQUIBB COMPANY-12635785

PATIENT
  Age: 38 Year
  Sex: Female

DRUGS (3)
  1. REYATAZ [Suspect]
     Indication: HIV INFECTION
     Dosage: THERAPY INTERRUPTED
     Route: 048
  2. BIOVIR [Concomitant]
  3. CIPROFLOXACIN [Concomitant]
     Dosage: THERAPY INTERRUPTED

REACTIONS (4)
  - ABDOMINAL PAIN [None]
  - BILIRUBIN CONJUGATED INCREASED [None]
  - PANCREATITIS [None]
  - VOMITING [None]
